FAERS Safety Report 10178880 (Version 1)
Quarter: 2014Q2

REPORT INFORMATION
  Report Type: Spontaneous
  Country: US (occurrence: US)
  Receive Date: 20140519
  Receipt Date: 20140519
  Transmission Date: 20141212
  Serious: Yes (Hospitalization, Other)
  Sender: FDA-Public Use
  Company Number: US-PFIZER INC-2014132941

PATIENT
  Age: 69 Year
  Sex: Male

DRUGS (3)
  1. PIPERACILLIN/TAZOBACTAM [Suspect]
     Indication: PNEUMONIA
     Dosage: UNK
  2. VANCOMYCIN HCL [Suspect]
     Indication: PNEUMONIA
     Dosage: UNK
     Route: 042
  3. LEVOFLOXACIN [Suspect]
     Indication: PNEUMONIA
     Dosage: UNK

REACTIONS (1)
  - Linear IgA disease [Recovered/Resolved]
